FAERS Safety Report 7884488-X (Version None)
Quarter: 2011Q4

REPORT INFORMATION
  Report Type: 
  Country: None (occurrence: None)
  Receive Date: 20111102
  Receipt Date: 20111021
  Transmission Date: 20120403
  Serious: Yes (Death)
  Sender: FDA-Public Use
  Company Number: FR-JNJFOC-20111009326

PATIENT
  Sex: Male

DRUGS (9)
  1. TERCIAN [Suspect]
     Indication: PRODUCT USED FOR UNKNOWN INDICATION
     Route: 048
     Dates: start: 20110822, end: 20110828
  2. METHADONE HCL [Suspect]
     Indication: PRODUCT USED FOR UNKNOWN INDICATION
     Route: 048
     Dates: start: 20110826, end: 20110828
  3. VALIUM [Suspect]
     Indication: PRODUCT USED FOR UNKNOWN INDICATION
     Route: 048
     Dates: start: 20110822, end: 20110828
  4. HALDOL [Suspect]
     Indication: PRODUCT USED FOR UNKNOWN INDICATION
     Route: 048
     Dates: start: 20110822, end: 20110828
  5. METHADONE HCL [Suspect]
     Route: 048
     Dates: start: 20110701
  6. RISPERDAL [Suspect]
     Indication: PRODUCT USED FOR UNKNOWN INDICATION
     Route: 048
     Dates: start: 20110824, end: 20110828
  7. METHADONE HCL [Suspect]
     Route: 048
     Dates: start: 20110823
  8. METHADONE HCL [Suspect]
     Route: 048
     Dates: start: 20110824
  9. IMOVANE [Suspect]
     Indication: PRODUCT USED FOR UNKNOWN INDICATION
     Route: 048
     Dates: start: 20110823, end: 20110827

REACTIONS (2)
  - COMA [None]
  - SOMNOLENCE [None]
